FAERS Safety Report 9693187 (Version 1)
Quarter: 2013Q4

REPORT INFORMATION
  Report Type: Spontaneous
  Country: US (occurrence: US)
  Receive Date: 20131118
  Receipt Date: 20131118
  Transmission Date: 20140711
  Serious: Yes (Life-Threatening, Hospitalization)
  Sender: FDA-Public Use
  Company Number: US-BAYER-2013-135765

PATIENT
  Age: 85 Year
  Sex: Female

DRUGS (5)
  1. SOTALOL [Suspect]
  2. VALSARTAN [Suspect]
  3. TRIMETHOPRIM-SULFAMETHOXAZOLE [Suspect]
     Indication: URINARY TRACT INFECTION
  4. SPIRONOLACTONE [Suspect]
  5. WARFARIN [Suspect]

REACTIONS (9)
  - Hyperkalaemia [Recovered/Resolved]
  - Bradycardia [Recovered/Resolved]
  - Metabolic acidosis [Recovered/Resolved]
  - Hypotension [Recovered/Resolved]
  - Hypovolaemia [Recovered/Resolved]
  - Acute prerenal failure [Recovered/Resolved]
  - Renal tubular necrosis [Recovered/Resolved]
  - Diarrhoea [None]
  - Drug interaction [None]
